FAERS Safety Report 16161414 (Version 2)
Quarter: 2022Q2

REPORT INFORMATION
  Report Type: Report from Study
  Country: US (occurrence: US)
  Receive Date: 20190405
  Receipt Date: 20220526
  Transmission Date: 20220721
  Serious: No
  Sender: FDA-Public Use
  Company Number: US-SHIRE-US201911148

PATIENT
  Sex: Female
  Weight: 77 kg

DRUGS (9)
  1. ICATIBANT [Suspect]
     Active Substance: ICATIBANT ACETATE
     Indication: Hereditary angioedema
     Dosage: 30 MILLIGRAM
     Route: 058
     Dates: start: 20170406
  2. ICATIBANT [Suspect]
     Active Substance: ICATIBANT ACETATE
     Indication: Hereditary angioedema
     Dosage: 30 MILLIGRAM
     Route: 058
     Dates: start: 20170406
  3. ICATIBANT [Suspect]
     Active Substance: ICATIBANT ACETATE
     Indication: Primary immunodeficiency syndrome
     Dosage: 30 MILLIGRAM
     Route: 058
     Dates: start: 20170407
  4. ICATIBANT [Suspect]
     Active Substance: ICATIBANT ACETATE
     Indication: Primary immunodeficiency syndrome
     Dosage: 30 MILLIGRAM
     Route: 058
     Dates: start: 20170407
  5. PROBIOTIC BABY [Concomitant]
     Dosage: UNK
     Route: 065
  6. HYDROCHLOROTHIAZIDE\TRIAMTERENE [Concomitant]
     Active Substance: HYDROCHLOROTHIAZIDE\TRIAMTERENE
     Dosage: UNK
     Route: 065
  7. IMITREX [Concomitant]
     Active Substance: SUMATRIPTAN SUCCINATE
     Dosage: UNK
     Route: 065
  8. NADOLOL [Concomitant]
     Active Substance: NADOLOL
     Dosage: UNK
     Route: 065
  9. ZOLOFT [Concomitant]
     Active Substance: SERTRALINE HYDROCHLORIDE
     Dosage: UNK
     Route: 065

REACTIONS (1)
  - Seasonal allergy [Unknown]
